FAERS Safety Report 4666903-8 (Version None)
Quarter: 2005Q2

REPORT INFORMATION
  Report Type: 
  Country: None (occurrence: None)
  Receive Date: 20050518
  Receipt Date: 20041010
  Transmission Date: 20051028
  Serious: Yes (Other)
  Sender: FDA-Public Use
  Company Number: 2004238373US

PATIENT
  Age: 17 Year
  Sex: Female
  Weight: 83.9 kg

DRUGS (2)
  1. DEPO-PROVERA [Suspect]
     Dosage: 150 MG/2MONTHS AND HALF, 1ST INJ.;  150 MG, MOST RECENT INJECTION
     Dates: start: 20030401, end: 20030401
  2. DEPO-PROVERA [Suspect]
     Dosage: 150 MG/2MONTHS AND HALF, 1ST INJ.;  150 MG, MOST RECENT INJECTION
     Dates: start: 20040801, end: 20040801

REACTIONS (1)
  - VAGINAL HAEMORRHAGE [None]
